FAERS Safety Report 4799818-5 (Version None)
Quarter: 2005Q4

REPORT INFORMATION
  Report Type: 
  Country: None (occurrence: None)
  Receive Date: 20051011
  Receipt Date: 20051011
  Transmission Date: 20060501
  Serious: Yes (Hospitalization)
  Sender: FDA-Public Use
  Company Number: None

PATIENT
  Sex: Male

DRUGS (2)
  1. FLEXERIL [Suspect]
     Indication: BACK PAIN
     Dosage: PO
     Route: 048
     Dates: start: 20050204
  2. NAPROSYN [Concomitant]

REACTIONS (3)
  - ASTHENIA [None]
  - DIZZINESS [None]
  - PHARYNGOLARYNGEAL PAIN [None]
